FAERS Safety Report 12267318 (Version 1)
Quarter: 2016Q2

REPORT INFORMATION
  Report Type: Spontaneous
  Country: US (occurrence: None)
  Receive Date: 20160413
  Receipt Date: 20160413
  Transmission Date: 20160815
  Serious: Yes (Hospitalization)
  Sender: FDA-Public Use
  Company Number: None

PATIENT
  Age: 34 Year
  Sex: Female
  Weight: 70.6 kg

DRUGS (2)
  1. EVEROLIMUS 5 MG [Suspect]
     Active Substance: EVEROLIMUS
     Indication: HODGKIN^S DISEASE
     Dosage: EVEROLIMUS 5MG QDX28 DAYS PO
     Route: 048
     Dates: start: 20131224
  2. REVLIMID [Suspect]
     Active Substance: LENALIDOMIDE
     Indication: HODGKIN^S DISEASE
     Dosage: REVLIMID 10MG QDX21 DAYS PO
     Route: 048
     Dates: start: 20131224

REACTIONS (3)
  - Disease progression [None]
  - Pathological fracture [None]
  - Clavicle fracture [None]

NARRATIVE: CASE EVENT DATE: 20160108
